FAERS Safety Report 25649193 (Version 1)
Quarter: 2025Q3

REPORT INFORMATION
  Report Type: Spontaneous
  Country: US (occurrence: None)
  Receive Date: 20250805
  Receipt Date: 20250805
  Transmission Date: 20251020
  Serious: Yes (Hospitalization)
  Sender: FDA-CTU
  Company Number: None

PATIENT
  Sex: Female

DRUGS (9)
  1. PROLIA [Suspect]
     Active Substance: DENOSUMAB
     Indication: Product used for unknown indication
     Route: 058
     Dates: start: 20200422
  2. BIOTIN [Concomitant]
     Active Substance: BIOTIN
  3. CALCIUM [Concomitant]
     Active Substance: CALCIUM
  4. CITRACAL CAL + D [Concomitant]
  5. CITRACAL PLS [Concomitant]
  6. IRON [Concomitant]
     Active Substance: IRON
  7. LATANOPROST SOL 0.005% [Concomitant]
  8. MULTIVITAMIN ADLT 50+ [Concomitant]
  9. NITROGLYCERIN [Concomitant]
     Active Substance: NITROGLYCERIN

REACTIONS (2)
  - Pulmonary embolism [None]
  - Peripheral embolism [None]
